FAERS Safety Report 4336112-0 (Version None)
Quarter: 2004Q2

REPORT INFORMATION
  Report Type: 
  Country: None (occurrence: None)
  Receive Date: 20040407
  Receipt Date: 20040323
  Transmission Date: 20050107
  Serious: Yes (Hospitalization)
  Sender: FDA-Public Use
  Company Number: F01200400640

PATIENT
  Age: 66 Year
  Sex: Male

DRUGS (4)
  1. (OXALIPLATIN) - SOLUTION - 100 MG/M2 [Suspect]
     Indication: PANCREATIC CARCINOMA
     Dosage: 165 MG , INTRAVENOUS NOS
     Route: 042
  2. (GEMCITABINE) - SOLUTION - 1000 MG/M2 [Suspect]
     Dosage: 1650 MG , INTRAVENOUS NOS
     Route: 042
     Dates: start: 20040310, end: 20040310
  3. SOLU-MEDROL [Concomitant]
  4. KYTRIL [Concomitant]

REACTIONS (3)
  - ARRHYTHMIA [None]
  - ATRIAL FLUTTER [None]
  - SYNCOPE [None]
